FAERS Safety Report 8404586-1 (Version None)
Quarter: 2012Q2

REPORT INFORMATION
  Report Type: 
  Country: None (occurrence: None)
  Receive Date: 20120601
  Receipt Date: 20120523
  Transmission Date: 20120825
  Serious: Yes (Hospitalization)
  Sender: FDA-Public Use
  Company Number: DE-BAXTER-2012BAX000093

PATIENT
  Age: 39 Year
  Sex: Male

DRUGS (4)
  1. EXTRANEAL [Suspect]
     Route: 033
     Dates: start: 20080418
  2. NUTRINEAL [Suspect]
     Route: 033
     Dates: start: 20080418
  3. VITAMIN D [Concomitant]
     Route: 065
  4. PHYSIOSOL IN PLASTIC CONTAINER [Suspect]
     Route: 033
     Dates: start: 20080418

REACTIONS (2)
  - EPILEPSY [None]
  - CEREBRAL ISCHAEMIA [None]
